FAERS Safety Report 7946707-0 (Version None)
Quarter: 2011Q4

REPORT INFORMATION
  Report Type: 
  Country: None (occurrence: None)
  Receive Date: 20111129
  Receipt Date: 20111125
  Transmission Date: 20120403
  Serious: No
  Sender: FDA-Public Use
  Company Number: US-PFIZER INC-2011288402

PATIENT
  Sex: Female

DRUGS (1)
  1. ALAVERT [Suspect]
     Indication: RHINORRHOEA
     Dosage: 10 MG TABLET, UNK FREQUENCY
     Route: 048
     Dates: start: 20111123, end: 20111123

REACTIONS (2)
  - SOMNOLENCE [None]
  - SEDATION [None]
